FAERS Safety Report 19490963 (Version 1)
Quarter: 2021Q3

REPORT INFORMATION
  Report Type: Spontaneous
  Country: US (occurrence: US)
  Receive Date: 20210705
  Receipt Date: 20210705
  Transmission Date: 20211014
  Serious: No
  Sender: FDA-Public Use
  Company Number: US-SA-2021SA210260

PATIENT
  Sex: Female

DRUGS (1)
  1. DUPIXENT [Suspect]
     Active Substance: DUPILUMAB
     Dosage: UNK
     Dates: start: 202106

REACTIONS (8)
  - Nausea [Unknown]
  - Vomiting [Recovered/Resolved]
  - Pyrexia [Unknown]
  - Chest discomfort [Unknown]
  - Blood pressure decreased [Unknown]
  - Throat tightness [Unknown]
  - Dizziness [Unknown]
  - Respiration abnormal [Unknown]

NARRATIVE: CASE EVENT DATE: 202106
